FAERS Safety Report 12302094 (Version 3)
Quarter: 2016Q3

REPORT INFORMATION
  Report Type: Spontaneous
  Country: US (occurrence: US)
  Receive Date: 20160425
  Receipt Date: 20160907
  Transmission Date: 20161109
  Serious: Yes (Other)
  Sender: FDA-Public Use
  Company Number: US-TEVA-653996USA

PATIENT
  Age: 59 Year
  Sex: Female

DRUGS (1)
  1. ZECUITY [Suspect]
     Active Substance: SUMATRIPTAN SUCCINATE
     Indication: MIGRAINE
     Route: 062
     Dates: start: 20160417, end: 20160417

REACTIONS (17)
  - Application site scar [Not Recovered/Not Resolved]
  - Skin exfoliation [Not Recovered/Not Resolved]
  - Application site burn [Not Recovered/Not Resolved]
  - Application site discolouration [Not Recovered/Not Resolved]
  - Application site irritation [Not Recovered/Not Resolved]
  - Application site pain [Not Recovered/Not Resolved]
  - Skin disorder [Not Recovered/Not Resolved]
  - Drug effect incomplete [Unknown]
  - Application site paraesthesia [Not Recovered/Not Resolved]
  - Application site scab [Not Recovered/Not Resolved]
  - Application site pruritus [Not Recovered/Not Resolved]
  - Application site discomfort [Not Recovered/Not Resolved]
  - Application site warmth [Not Recovered/Not Resolved]
  - Wrong technique in product usage process [Unknown]
  - Product adhesion issue [Unknown]
  - Application site erythema [Not Recovered/Not Resolved]
  - Application site erosion [Not Recovered/Not Resolved]

NARRATIVE: CASE EVENT DATE: 20160417
